FAERS Safety Report 25894690 (Version 2)
Quarter: 2025Q4

REPORT INFORMATION
  Report Type: Spontaneous
  Country: US (occurrence: US)
  Receive Date: 20251008
  Receipt Date: 20251119
  Transmission Date: 20260118
  Serious: No
  Sender: SANDOZ
  Company Number: US-SANDOZ-SDZ2025US071757

PATIENT
  Age: 40 Year
  Sex: Male

DRUGS (2)
  1. HYRIMOZ [Suspect]
     Active Substance: ADALIMUMAB-ADAZ
     Indication: Product used for unknown indication
     Dosage: UNK (HYRIMOZ (ADALIMUMAB-ADAZ) 40MG  INJECTION, FOR SUBCUTANEOUS USE IN PREFILLED PEN) (HYRIMOZ COR
     Route: 058
  2. HYRIMOZ [Suspect]
     Active Substance: ADALIMUMAB-ADAZ
     Indication: Product used for unknown indication
     Dosage: UNK (HYRIMOZ (ADALIMUMAB-ADAZ) 40MG  INJECTION, FOR SUBCUTANEOUS USE IN PREFILLED PEN) (HYRIMOZ COR
     Route: 058

REACTIONS (2)
  - Circumstance or information capable of leading to medication error [Unknown]
  - Device malfunction [Unknown]
